FAERS Safety Report 5581585-9 (Version None)
Quarter: 2008Q1

REPORT INFORMATION
  Report Type: 
  Country: None (occurrence: None)
  Receive Date: 20080102
  Receipt Date: 20080102
  Transmission Date: 20080703
  Serious: Yes (Other)
  Sender: FDA-Public Use
  Company Number: None

PATIENT
  Age: 33 Year
  Sex: Female
  Weight: 68.0396 kg

DRUGS (1)
  1. BUDEPRION XL 300MG TEVN [Suspect]
     Indication: DEPRESSION
     Dosage: 300MG ONCE A DAY PO
     Route: 048
     Dates: start: 20071209, end: 20071230

REACTIONS (6)
  - ANXIETY [None]
  - DYSPNOEA [None]
  - FEAR [None]
  - IRRITABILITY [None]
  - NAUSEA [None]
  - PHARMACEUTICAL PRODUCT COMPLAINT [None]
